FAERS Safety Report 9013366 (Version 1)
Quarter: 2013Q1

REPORT INFORMATION
  Report Type: Spontaneous
  Country: US (occurrence: None)
  Receive Date: 20130107
  Receipt Date: 20130107
  Transmission Date: 20140127
  Serious: No
  Sender: FDA-Public Use
  Company Number: None

PATIENT
  Sex: Female
  Weight: 68.04 kg

DRUGS (2)
  1. CLONAZEPAM [Suspect]
     Indication: ANXIETY
     Dosage: KLONOPIN 1MG QHS ORAL
     Route: 048
     Dates: start: 1996, end: 1997
  2. CLONAZEPAM [Suspect]
     Dates: start: 1996, end: 1997

REACTIONS (4)
  - Drug ineffective [None]
  - Sleep terror [None]
  - Insomnia [None]
  - Impaired work ability [None]
